FAERS Safety Report 15466394 (Version 2)
Quarter: 2019Q1

REPORT INFORMATION
  Report Type: Report from Study
  Country: JP (occurrence: JP)
  Receive Date: 20181004
  Receipt Date: 20190118
  Transmission Date: 20190417
  Serious: Yes (Hospitalization)
  Sender: FDA-Public Use
  Company Number: JP-AMGEN-JPNCT2018137909

PATIENT
  Age: 72 Year
  Sex: Male

DRUGS (8)
  1. PRIMOBOLAN-DEPOT [Suspect]
     Active Substance: METHENOLONE ENANTHATE
     Indication: APLASIA PURE RED CELL
     Dosage: 20 MG, UNK
     Route: 048
  2. DOMPERIDONE [Concomitant]
     Active Substance: DOMPERIDONE
     Indication: PRODUCT USED FOR UNKNOWN INDICATION
     Dosage: 30 MG, UNK
     Route: 048
     Dates: end: 20180423
  3. CINACALCET HCL [Suspect]
     Active Substance: CINACALCET HYDROCHLORIDE
     Indication: HYPERPARATHYROIDISM PRIMARY
     Dosage: 25 MG, QD
     Route: 048
     Dates: start: 20180126
  4. PREDNISOLONE. [Suspect]
     Active Substance: PREDNISOLONE
     Indication: APLASIA PURE RED CELL
     Dosage: 1 MG, UNK
     Route: 048
  5. ETIZOLAM [Concomitant]
     Active Substance: ETIZOLAM
     Indication: PRODUCT USED FOR UNKNOWN INDICATION
     Dosage: 1.5 MG, UNK
     Route: 048
     Dates: end: 20180409
  6. TAKECAB [Concomitant]
     Active Substance: VONOPRAZAN FUMURATE
     Indication: GASTROOESOPHAGEAL REFLUX DISEASE
     Dosage: 10 MG, UNK
     Route: 048
  7. VFEND [Concomitant]
     Active Substance: VORICONAZOLE
     Indication: BRONCHOPULMONARY ASPERGILLOSIS
     Dosage: 300 MG, UNK
     Route: 048
  8. AUGMENTIN [Concomitant]
     Active Substance: AMOXICILLIN\CLAVULANATE POTASSIUM
     Indication: DENTAL CARIES
     Dosage: 750 MG, UNK
     Route: 048
     Dates: start: 20180126

REACTIONS (3)
  - Vomiting [Recovering/Resolving]
  - Pneumonia [Recovering/Resolving]
  - Nausea [Recovering/Resolving]

NARRATIVE: CASE EVENT DATE: 20180322
